FAERS Safety Report 8854910 (Version 2)
Quarter: 2012Q4

REPORT INFORMATION
  Report Type: 
  Country: US (occurrence: US)
  Receive Date: 20121023
  Receipt Date: 20121107
  Transmission Date: 20130627
  Serious: Yes (Other)
  Sender: FDA-Public Use
  Company Number: US-ELI_LILLY_AND_COMPANY-US201210004001

PATIENT
  Sex: Female
  Weight: 53.97 kg

DRUGS (3)
  1. PROZAC [Suspect]
     Indication: DEPRESSION
     Dosage: 10 mg, bid
     Dates: start: 2010
  2. PROZAC [Suspect]
     Dosage: 10 mg, tid
     Route: 048
     Dates: start: 2012
  3. THYROXINE [Concomitant]
     Indication: THYROID DISORDER

REACTIONS (2)
  - Syncope [Not Recovered/Not Resolved]
  - Orthostatic hypotension [Not Recovered/Not Resolved]
